FAERS Safety Report 5934058-5 (Version None)
Quarter: 2008Q4

REPORT INFORMATION
  Report Type: 
  Country: None (occurrence: None)
  Receive Date: 20081028
  Receipt Date: 20081028
  Transmission Date: 20090506
  Serious: Yes (Hospitalization)
  Sender: FDA-Public Use
  Company Number: None

PATIENT
  Age: 75 Year
  Sex: Male
  Weight: 60.9 kg

DRUGS (1)
  1. WARFARIN SODIUM [Suspect]
     Dosage: 5 MG AT BEDTIME PO
     Route: 048
     Dates: start: 20080514, end: 20080527

REACTIONS (1)
  - INTERNATIONAL NORMALISED RATIO INCREASED [None]
